FAERS Safety Report 12353573 (Version 1)
Quarter: 2016Q2

REPORT INFORMATION
  Report Type: Spontaneous
  Country: US (occurrence: US)
  Receive Date: 20160511
  Receipt Date: 20160511
  Transmission Date: 20160815
  Serious: Yes (Other)
  Sender: FDA-Public Use
  Company Number: US-HOSPIRA-3278456

PATIENT
  Age: 27 Year
  Sex: Female

DRUGS (2)
  1. NORADRENALINE TARTRATE [Suspect]
     Active Substance: NOREPINEPHRINE BITARTRATE
     Indication: BLOOD PRESSURE DECREASED
     Dosage: 8 MG OR 4 CC PER LITER
     Route: 042
  2. GLUCOSE WATER [Concomitant]
     Indication: BLOOD PRESSURE DECREASED

REACTIONS (3)
  - Necrosis ischaemic [Recovered/Resolved]
  - Skin ulcer haemorrhage [Recovered/Resolved]
  - Gastrointestinal ulcer [Recovered/Resolved]
